FAERS Safety Report 25641251 (Version 2)
Quarter: 2025Q3

REPORT INFORMATION
  Report Type: Spontaneous
  Country: EU (occurrence: EU)
  Receive Date: 20250804
  Receipt Date: 20250819
  Transmission Date: 20251020
  Serious: Yes (Other)
  Sender: MYLAN
  Company Number: EU-AMGEN-ITASP2025135439

PATIENT
  Age: 23 Year
  Sex: Female

DRUGS (9)
  1. OXALIPLATIN [Suspect]
     Active Substance: OXALIPLATIN
     Indication: Rectal adenocarcinoma
  2. OXALIPLATIN [Suspect]
     Active Substance: OXALIPLATIN
     Dosage: 50 MILLIGRAM/SQ. METER, QW
     Dates: start: 202003, end: 202005
  3. IRINOTECAN [Suspect]
     Active Substance: IRINOTECAN
     Indication: Rectal adenocarcinoma
  4. PANITUMUMAB [Suspect]
     Active Substance: PANITUMUMAB
     Indication: Rectal adenocarcinoma
  5. PANITUMUMAB [Suspect]
     Active Substance: PANITUMUMAB
  6. FLUOROURACIL [Suspect]
     Active Substance: FLUOROURACIL
     Indication: Rectal adenocarcinoma
  7. FLUOROURACIL [Suspect]
     Active Substance: FLUOROURACIL
     Dates: start: 202003, end: 202005
  8. LEUCOVORIN [Suspect]
     Active Substance: LEUCOVORIN\LEUCOVORIN CALCIUM
     Indication: Rectal adenocarcinoma
  9. IRINOTECAN [Concomitant]
     Active Substance: IRINOTECAN
     Indication: Rectal adenocarcinoma

REACTIONS (13)
  - Premature menopause [Not Recovered/Not Resolved]
  - Menopausal symptoms [Unknown]
  - Vitamin D deficiency [Unknown]
  - Endocrine disorder [Unknown]
  - Metabolic disorder [Unknown]
  - Amenorrhoea [Not Recovered/Not Resolved]
  - Ovarian failure [Not Recovered/Not Resolved]
  - Arthralgia [Unknown]
  - Body mass index increased [Unknown]
  - Diarrhoea [Unknown]
  - Fatigue [Unknown]
  - Alopecia [Unknown]
  - Vomiting [Unknown]

NARRATIVE: CASE EVENT DATE: 20200101
